FAERS Safety Report 18052918 (Version 10)
Quarter: 2021Q3

REPORT INFORMATION
  Report Type: Report from Study
  Country: US (occurrence: US)
  Receive Date: 20200722
  Receipt Date: 20210720
  Transmission Date: 20211014
  Serious: Yes (Hospitalization, Other)
  Sender: FDA-Public Use
  Company Number: US-B.I. PHARMACEUTICALS,INC./RIDGEFIELD-2020-US-035764

PATIENT
  Age: 63 Year
  Sex: Female

DRUGS (10)
  1. VENTOLIN HFA [Concomitant]
     Active Substance: ALBUTEROL SULFATE
     Indication: PRODUCT USED FOR UNKNOWN INDICATION
     Route: 065
  2. GILOTRIF [Suspect]
     Active Substance: AFATINIB
     Indication: NON-SMALL CELL LUNG CANCER
     Route: 048
     Dates: start: 20200523
  3. OXYCODONE [Concomitant]
     Active Substance: OXYCODONE
  4. VENTOLIN [Concomitant]
     Active Substance: ALBUTEROL SULFATE
     Indication: PRODUCT USED FOR UNKNOWN INDICATION
     Route: 065
  5. VENTOLIN HFA [Concomitant]
     Active Substance: ALBUTEROL SULFATE
  6. PERCOCET [Concomitant]
     Active Substance: ACETAMINOPHEN\OXYCODONE HYDROCHLORIDE
     Indication: PRODUCT USED FOR UNKNOWN INDICATION
     Route: 065
  7. SYMBICORT [Concomitant]
     Active Substance: BUDESONIDE\FORMOTEROL FUMARATE DIHYDRATE
  8. SYMBICORT [Concomitant]
     Active Substance: BUDESONIDE\FORMOTEROL FUMARATE DIHYDRATE
     Indication: PRODUCT USED FOR UNKNOWN INDICATION
     Route: 065
  9. GILOTRIF [Suspect]
     Active Substance: AFATINIB
     Dosage: GILOTRIF 30MG ORALLY DAILY
     Route: 048
  10. OXYCODONE AND ACETAMINOPHEN [Concomitant]
     Active Substance: ACETAMINOPHEN\OXYCODONE HYDROCHLORIDE
     Indication: PRODUCT USED FOR UNKNOWN INDICATION
     Route: 065

REACTIONS (18)
  - Confusional state [Unknown]
  - Brain neoplasm malignant [Unknown]
  - Headache [Unknown]
  - Diarrhoea [Recovered/Resolved]
  - Dementia [Unknown]
  - Malaise [Unknown]
  - Asthenia [Unknown]
  - Product packaging quantity issue [Unknown]
  - Chronic obstructive pulmonary disease [Unknown]
  - Asthenia [Not Recovered/Not Resolved]
  - Anxiety [Unknown]
  - Nausea [Unknown]
  - Weight decreased [Unknown]
  - Fatigue [Recovered/Resolved]
  - Memory impairment [Unknown]
  - Diarrhoea [Not Recovered/Not Resolved]
  - Vomiting [Unknown]
  - Chronic obstructive pulmonary disease [Unknown]

NARRATIVE: CASE EVENT DATE: 20200701
